FAERS Safety Report 14183043 (Version 3)
Quarter: 2018Q3

REPORT INFORMATION
  Report Type: Report from Study
  Country: IT (occurrence: IT)
  Receive Date: 20171113
  Receipt Date: 20180820
  Transmission Date: 20181010
  Serious: Yes (Other)
  Sender: FDA-Public Use
  Company Number: IT-TEVA-825306ACC

PATIENT
  Age: 78 Year
  Sex: Female

DRUGS (1)
  1. LEVOFLOXACIN. [Suspect]
     Active Substance: LEVOFLOXACIN
     Indication: PNEUMONIA
     Dosage: 1 DOSAGE FORMS DAILY;
     Route: 048
     Dates: start: 20170701, end: 20170705

REACTIONS (4)
  - Tendon injury [Unknown]
  - Oedema [Unknown]
  - Ecchymosis [Unknown]
  - Swelling [Unknown]

NARRATIVE: CASE EVENT DATE: 20170714
